FAERS Safety Report 18363016 (Version 1)
Quarter: 2020Q4

REPORT INFORMATION
  Report Type: Spontaneous
  Country: DK (occurrence: DK)
  Receive Date: 20201008
  Receipt Date: 20201008
  Transmission Date: 20210114
  Serious: Yes (Other)
  Sender: FDA-Public Use
  Company Number: DK-PFIZER INC-2020386306

PATIENT
  Age: 75 Year
  Sex: Male

DRUGS (8)
  1. ZOLPIDEM [Concomitant]
     Active Substance: ZOLPIDEM TARTRATE
     Indication: INSOMNIA
     Dosage: 5 MG, 1X/DAY
     Route: 048
     Dates: start: 20191210
  2. OLANZAPIN ACTAVIS [Concomitant]
     Active Substance: OLANZAPINE
     Indication: DEPRESSION
     Dosage: 2.5 MG, 1X/DAY
     Route: 048
     Dates: start: 20150928
  3. ENALAPRIL SANDOZ [Concomitant]
     Active Substance: ENALAPRIL
     Indication: HYPERTENSION
     Dosage: 10 MG, 1X/DAY
     Route: 048
     Dates: start: 20150807
  4. LANSOPRAZOL KRKA [Concomitant]
     Indication: GASTROOESOPHAGEAL REFLUX DISEASE
     Dosage: 30 MG, 1X/DAY
     Route: 048
     Dates: start: 20160120
  5. LOPID [Suspect]
     Active Substance: GEMFIBROZIL
     Indication: HYPERCHOLESTEROLAEMIA
     Dosage: 1200 MG, 1X/DAY
     Route: 048
     Dates: start: 20170101, end: 20200807
  6. VENLAFAXINE [Concomitant]
     Active Substance: VENLAFAXINE HYDROCHLORIDE
     Indication: DEPRESSION
     Dosage: 75 MG, 1X/DAY
     Route: 048
     Dates: start: 20151028
  7. BETOLVEX [CYANOCOBALAMIN-TANNIN COMPLEX] [Concomitant]
     Indication: ANAEMIA VITAMIN B12 DEFICIENCY
     Dosage: 1 MG, 1X/DAY
     Route: 048
     Dates: start: 20181207
  8. PINEX [Concomitant]
     Indication: PAIN
     Dosage: 1000 MG MAX 4 TIMES DAILY AS NECESSARY
     Route: 048
     Dates: start: 20150922

REACTIONS (4)
  - Balance disorder [Not Recovered/Not Resolved]
  - Vertigo [Not Recovered/Not Resolved]
  - Dizziness [Not Recovered/Not Resolved]
  - Glomerular filtration rate decreased [Not Recovered/Not Resolved]

NARRATIVE: CASE EVENT DATE: 20200804
